FAERS Safety Report 20633645 (Version 1)
Quarter: 2022Q1

REPORT INFORMATION
  Report Type: Spontaneous
  Country: JP (occurrence: JP)
  Receive Date: 20220324
  Receipt Date: 20220324
  Transmission Date: 20220423
  Serious: Yes (Other)
  Sender: FDA-Public Use
  Company Number: JP-MSD-M2022-11435

PATIENT
  Sex: Male

DRUGS (4)
  1. KEYTRUDA [Suspect]
     Active Substance: PEMBROLIZUMAB
     Dosage: 200 MILLIGRAM, Q3W
     Route: 041
  2. KEYTRUDA [Suspect]
     Active Substance: PEMBROLIZUMAB
     Dosage: 200 MILLIGRAM, Q3W
     Route: 041
  3. INLYTA [Suspect]
     Active Substance: AXITINIB
     Dosage: UNK
     Route: 065
  4. INLYTA [Suspect]
     Active Substance: AXITINIB
     Dosage: UNK
     Route: 065

REACTIONS (1)
  - Dysphonia [Unknown]
